FAERS Safety Report 16608930 (Version 6)
Quarter: 2019Q3

REPORT INFORMATION
  Report Type: Report from Study
  Country: US (occurrence: US)
  Receive Date: 20190722
  Receipt Date: 20190925
  Transmission Date: 20191004
  Serious: Yes (Hospitalization)
  Sender: FDA-Public Use
  Company Number: US-JNJFOC-20190622070

PATIENT
  Age: 75 Year
  Sex: Male

DRUGS (10)
  1. PROTEIN [Concomitant]
     Active Substance: PROTEIN
  2. IMBRUVICA [Suspect]
     Active Substance: IBRUTINIB
     Indication: CHRONIC LYMPHOCYTIC LEUKAEMIA
     Dosage: 420 MG, QD
     Route: 048
     Dates: start: 20190326, end: 20190701
  3. IMBRUVICA [Suspect]
     Active Substance: IBRUTINIB
     Route: 048
     Dates: start: 20190723
  4. IMBRUVICA [Suspect]
     Active Substance: IBRUTINIB
     Route: 048
     Dates: start: 20190328
  5. TAMSULOSIN [Concomitant]
     Active Substance: TAMSULOSIN
  6. SPIRONOLACTONE. [Concomitant]
     Active Substance: SPIRONOLACTONE
  7. OMEPRAZOLE. [Concomitant]
     Active Substance: OMEPRAZOLE
  8. POTASSIUM CHLORIDE. [Concomitant]
     Active Substance: POTASSIUM CHLORIDE
  9. LISINOPRIL. [Concomitant]
     Active Substance: LISINOPRIL
  10. ALLOPURINOL. [Concomitant]
     Active Substance: ALLOPURINOL
     Route: 065

REACTIONS (9)
  - Dehydration [Recovered/Resolved]
  - Chest pain [Recovering/Resolving]
  - Heat stroke [Recovered/Resolved]
  - Red blood cell abnormality [Recovering/Resolving]
  - Syncope [Recovered/Resolved]
  - Blood creatinine increased [Unknown]
  - Pneumonia [Recovered/Resolved]
  - White blood cell disorder [Recovering/Resolving]
  - Somnolence [Recovered/Resolved]

NARRATIVE: CASE EVENT DATE: 2019
